FAERS Safety Report 16203987 (Version 1)
Quarter: 2019Q2

REPORT INFORMATION
  Report Type: Spontaneous
  Country: IN (occurrence: IN)
  Receive Date: 20190416
  Receipt Date: 20190416
  Transmission Date: 20190711
  Serious: Yes (Death)
  Sender: FDA-Public Use
  Company Number: IN-HERITAGE PHARMACEUTICALS-2019HTG00136

PATIENT
  Age: 50 Year
  Sex: Female

DRUGS (1)
  1. LITHIUM CARBONATE. [Suspect]
     Active Substance: LITHIUM CARBONATE
     Indication: BIPOLAR DISORDER
     Dosage: 600 MG, ^MAINTENANCE THERAPY FOR MANY YEARS^
     Route: 065

REACTIONS (3)
  - Renal impairment [Fatal]
  - Septic encephalopathy [Fatal]
  - Cardiac arrest [Fatal]
